FAERS Safety Report 6311081-2 (Version None)
Quarter: 2009Q3

REPORT INFORMATION
  Report Type: 
  Country: None (occurrence: None)
  Receive Date: 20090817
  Receipt Date: 20090813
  Transmission Date: 20100115
  Serious: Yes (Death)
  Sender: FDA-Public Use
  Company Number: JP-JNJFOC-20090800518

PATIENT
  Sex: Female
  Weight: 45 kg

DRUGS (12)
  1. ITRIZOLE [Suspect]
     Indication: FEBRILE NEUTROPENIA
     Route: 041
  2. SOLU-MEDROL [Suspect]
     Route: 042
  3. SOLU-MEDROL [Suspect]
     Route: 042
  4. SOLU-MEDROL [Suspect]
     Indication: TUMOUR ASSOCIATED FEVER
     Route: 042
  5. FLUDARABINE PHOSPHATE [Suspect]
     Indication: ACUTE MYELOID LEUKAEMIA
     Route: 042
  6. CYLOCIDE [Suspect]
     Indication: ACUTE MYELOID LEUKAEMIA
     Route: 042
  7. NOVANTRONE [Suspect]
     Indication: ACUTE MYELOID LEUKAEMIA
     Route: 042
  8. FINIBAX [Concomitant]
     Indication: FEBRILE NEUTROPENIA
     Route: 042
  9. CIPROFLOXACIN [Concomitant]
     Indication: FEBRILE NEUTROPENIA
     Route: 042
  10. VANCOMYCIN [Concomitant]
     Indication: FEBRILE NEUTROPENIA
     Route: 042
  11. NEUTROGIN [Concomitant]
     Indication: NEUTROPENIA
     Route: 042
  12. MIXED AMINO ACID CARBOHYDRATE ELECTROLYTE VITAMIN COMBINED DRUG [Concomitant]
     Indication: MALNUTRITION
     Route: 042

REACTIONS (8)
  - ACUTE MYELOID LEUKAEMIA [None]
  - ALTERED STATE OF CONSCIOUSNESS [None]
  - BLOOD LACTATE DEHYDROGENASE INCREASED [None]
  - DRUG INEFFECTIVE [None]
  - ENTEROCOCCAL SEPSIS [None]
  - HEPATIC VEIN OCCLUSION [None]
  - NEUTROPHIL COUNT DECREASED [None]
  - WHITE BLOOD CELL COUNT DECREASED [None]
